FAERS Safety Report 12988312 (Version 1)
Quarter: 2016Q4

REPORT INFORMATION
  Report Type: Spontaneous
  Country: JP (occurrence: JP)
  Receive Date: 20161130
  Receipt Date: 20161130
  Transmission Date: 20170207
  Serious: Yes (Hospitalization)
  Sender: FDA-Public Use
  Company Number: JP-PFIZER INC-2016546875

PATIENT
  Age: 54 Year
  Sex: Female

DRUGS (3)
  1. MIGLITOL. [Suspect]
     Active Substance: MIGLITOL
     Indication: SUICIDE ATTEMPT
     Dosage: 2500 MG, SINGLE (50 MG X 50 TABLETS)
     Route: 048
  2. GLIMEPIRIDE. [Suspect]
     Active Substance: GLIMEPIRIDE
     Indication: SUICIDE ATTEMPT
     Dosage: 30 MG, SINGLE (1 MG X 30 TABLETS)
     Route: 048
  3. METFORMIN HCL [Suspect]
     Active Substance: METFORMIN HYDROCHLORIDE
     Indication: SUICIDE ATTEMPT
     Dosage: 750 MG, SINGLE (250 MG X 3 TABLETS)
     Route: 048

REACTIONS (4)
  - Intentional overdose [Recovered/Resolved]
  - Hypoglycaemia [Recovered/Resolved]
  - Overdose [Recovered/Resolved]
  - Somnolence [Recovered/Resolved]
